FAERS Safety Report 4341291-5 (Version None)
Quarter: 2004Q1

REPORT INFORMATION
  Report Type: 
  Country: None (occurrence: None)
  Receive Date: 20040314
  Receipt Date: 20030519
  Transmission Date: 20041129
  Serious: Yes (Hospitalization)
  Sender: FDA-Public Use
  Company Number: 2003-BP-03383BP (0)

PATIENT
  Age: 89 Year
  Sex: Female

DRUGS (1)
  1. MOBIC [Suspect]
     Dosage: PO
     Route: 048
     Dates: start: 20020101, end: 20030501

REACTIONS (1)
  - UPPER GASTROINTESTINAL HAEMORRHAGE [None]
